FAERS Safety Report 5034888-0 (Version None)
Quarter: 2006Q2

REPORT INFORMATION
  Report Type: 
  Country: None (occurrence: None)
  Receive Date: 20060517
  Receipt Date: 20060206
  Transmission Date: 20061013
  Serious: Yes (Other)
  Sender: FDA-Public Use
  Company Number: PHEH2006US00637

PATIENT
  Age: 55 Year
  Sex: Female
  Weight: 72.6 kg

DRUGS (6)
  1. GLEEVEC [Suspect]
     Indication: CHRONIC MYELOID LEUKAEMIA
     Dosage: SEE IMAGE
     Route: 048
     Dates: start: 20051230, end: 20060109
  2. DIOVAN [Concomitant]
  3. NIACIN [Concomitant]
  4. TUMS (CALCIUM CARBONATE) [Concomitant]
  5. FOLIC ACID [Concomitant]
  6. POTASSIUM (POTASSIUM) [Concomitant]

REACTIONS (3)
  - DERMATITIS BULLOUS [None]
  - ERYTHEMA [None]
  - PERIORBITAL OEDEMA [None]
